FAERS Safety Report 15274814 (Version 2)
Quarter: 2018Q3

REPORT INFORMATION
  Report Type: Spontaneous
  Country: JP (occurrence: JP)
  Receive Date: 20180814
  Receipt Date: 20180904
  Transmission Date: 20181010
  Serious: Yes (Hospitalization)
  Sender: FDA-Public Use
  Company Number: JP-SUN PHARMACEUTICAL INDUSTRIES LTD-2018R3-181407

PATIENT
  Age: 25 Year
  Sex: Female

DRUGS (2)
  1. TEGRETOL [Interacting]
     Active Substance: CARBAMAZEPINE
     Indication: EPILEPSY
     Dosage: 1200 MG, DAILY
     Route: 048
  2. DEXAMETHASONE. [Suspect]
     Active Substance: DEXAMETHASONE
     Indication: PRODUCT USED FOR UNKNOWN INDICATION
     Dosage: 3.3 TO 1.65 MG/DAY
     Route: 065

REACTIONS (4)
  - Upper respiratory tract infection [Unknown]
  - Simple partial seizures [Unknown]
  - Drug interaction [Recovered/Resolved]
  - Asthma [Unknown]
